FAERS Safety Report 4490045-8 (Version None)
Quarter: 2004Q4

REPORT INFORMATION
  Report Type: 
  Country: None (occurrence: None)
  Receive Date: 20041027
  Receipt Date: 20041012
  Transmission Date: 20050328
  Serious: Yes (Hospitalization)
  Sender: FDA-Public Use
  Company Number: 2004-BP-09754RO

PATIENT
  Age: 44 Year
  Sex: Female

DRUGS (6)
  1. DEXAMETHASONE [Suspect]
     Indication: MULTIPLE MYELOMA
     Dosage: CYCLIC:  40 MG/D, PO
     Route: 048
     Dates: start: 20021107, end: 20021124
  2. GENASENSE [Suspect]
     Indication: MULTIPLE MYELOMA
     Dosage: CYCLIC:  7 MG/KG/DAY, IV
     Route: 042
     Dates: start: 20021104, end: 20021125
  3. RANITIDINE [Concomitant]
  4. SIMVASTATIN [Concomitant]
  5. IBUPROFEN [Concomitant]
  6. LEVOFLOXACIN [Concomitant]

REACTIONS (2)
  - BRONCHITIS ACUTE [None]
  - PNEUMONIA [None]
